FAERS Safety Report 4594616-X (Version None)
Quarter: 2005Q1

REPORT INFORMATION
  Report Type: 
  Country: None (occurrence: None)
  Receive Date: 20050301
  Receipt Date: 20041103
  Transmission Date: 20050727
  Serious: No
  Sender: FDA-Public Use
  Company Number: US-BRISTOL-MYERS SQUIBB COMPANY-12755468

PATIENT
  Sex: Female
  Weight: 82 kg

DRUGS (8)
  1. ERBITUX [Suspect]
     Indication: COLORECTAL CANCER METASTATIC
     Route: 042
     Dates: start: 20041001
  2. ANZEMET [Concomitant]
     Indication: PREMEDICATION
  3. ATROPINE [Concomitant]
     Indication: PREMEDICATION
  4. BENADRYL [Concomitant]
     Indication: PREMEDICATION
  5. CPT-11 [Concomitant]
  6. FLUOROURACIL [Concomitant]
  7. IRINOTECAN HCL [Concomitant]
  8. PREVACID [Concomitant]

REACTIONS (1)
  - NAIL DISORDER [None]
